FAERS Safety Report 9002708 (Version 1)
Quarter: 2013Q1

REPORT INFORMATION
  Report Type: Spontaneous
  Country: US (occurrence: US)
  Receive Date: 20130107
  Receipt Date: 20130107
  Transmission Date: 20140127
  Serious: Yes (Hospitalization)
  Sender: FDA-Public Use
  Company Number: US-GLAXOSMITHKLINE-A0984005A

PATIENT
  Age: 27 Year
  Sex: Female
  Weight: 68.1 kg

DRUGS (8)
  1. BENLYSTA [Suspect]
     Indication: SYSTEMIC LUPUS ERYTHEMATOSUS
     Dosage: 600MG CYCLIC
     Route: 042
     Dates: start: 20111017
  2. PROZAC [Suspect]
     Indication: PRODUCT USED FOR UNKNOWN INDICATION
  3. XANAX [Concomitant]
  4. WELLBUTRIN [Concomitant]
  5. ZOLOFT [Concomitant]
  6. ASPIRIN [Concomitant]
  7. IMURAN [Concomitant]
  8. ATIVAN [Concomitant]

REACTIONS (6)
  - Dystonia [Recovered/Resolved]
  - Feeling jittery [Recovered/Resolved]
  - Tremor [Recovered/Resolved]
  - Feeling hot [Recovered/Resolved]
  - Hypersensitivity [Recovered/Resolved]
  - Dyskinesia [Unknown]
